FAERS Safety Report 10470474 (Version 1)
Quarter: 2014Q3

REPORT INFORMATION
  Report Type: Spontaneous
  Country: US (occurrence: None)
  Receive Date: 20140905
  Receipt Date: 20140905
  Transmission Date: 20150326
  Serious: Yes (Hospitalization)
  Sender: FDA-Public Use
  Company Number: A-US2014-099667

PATIENT
  Age: 72 Year
  Sex: Male

DRUGS (1)
  1. VELETRI [Suspect]
     Active Substance: EPOPROSTENOL
     Indication: PULMONARY ARTERIAL HYPERTENSION
     Dosage: 25 NG/KG, PER MIN, INTRAVENOUS
     Route: 042
     Dates: start: 20110929

REACTIONS (3)
  - Syncope [None]
  - Device dislocation [None]
  - Pulmonary arterial hypertension [None]
